FAERS Safety Report 6658644-2 (Version None)
Quarter: 2010Q1

REPORT INFORMATION
  Report Type: 
  Country: None (occurrence: None)
  Receive Date: 20100330
  Receipt Date: 20100319
  Transmission Date: 20100710
  Serious: Yes (Hospitalization)
  Sender: FDA-Public Use
  Company Number: US-JNJFOC-20100306227

PATIENT
  Age: 16 Year
  Sex: Female
  Weight: 73.6 kg

DRUGS (11)
  1. REMICADE [Suspect]
     Indication: CROHN'S DISEASE
     Dosage: WEEK 0
     Route: 042
  2. ENTOCORT EC [Concomitant]
  3. PROZAC [Concomitant]
  4. PREVACID [Concomitant]
  5. ZYRTEC [Concomitant]
  6. LO-OVRAL 1 TAB ORAL CONTRACEPTION [Concomitant]
  7. MULTIPLE VITAMIN [Concomitant]
  8. IRON [Concomitant]
  9. ZOFRAN [Concomitant]
  10. NASONEX [Concomitant]
  11. TYLENOL-500 [Concomitant]
     Dosage: RARELY

REACTIONS (3)
  - ABDOMINAL PAIN [None]
  - CLOSTRIDIAL INFECTION [None]
  - HEPATIC ENZYME INCREASED [None]
